FAERS Safety Report 8422643-0 (Version None)
Quarter: 2012Q2

REPORT INFORMATION
  Report Type: 
  Country: None (occurrence: None)
  Receive Date: 20120608
  Receipt Date: 20120530
  Transmission Date: 20120825
  Serious: Yes (Hospitalization, Other)
  Sender: FDA-Public Use
  Company Number: AU-ROCHE-1072142

PATIENT
  Sex: Female

DRUGS (1)
  1. ACTEMRA [Suspect]
     Indication: RHEUMATOID ARTHRITIS
     Dosage: VOLUME OF INFUSION: 22.4 ML
     Route: 042
     Dates: start: 20110701

REACTIONS (2)
  - HAEMOPTYSIS [None]
  - HYPERTENSION [None]
